FAERS Safety Report 8811062 (Version 1)
Quarter: 2012Q4

REPORT INFORMATION
  Report Type: 
  Country: US (occurrence: US)
  Receive Date: 20120927
  Receipt Date: 20120927
  Transmission Date: 20130627
  Serious: Yes (Other)
  Sender: FDA-Public Use
  Company Number: PHEH2012US018436

PATIENT
  Sex: Female

DRUGS (3)
  1. ZOMETA [Suspect]
     Dosage: UNK UKN, Every month
  2. ZOMETA [Suspect]
     Dosage: UNK UKN, Every 3 month
  3. METOPROLOL [Concomitant]

REACTIONS (2)
  - Deafness [Unknown]
  - Eye disorder [Unknown]
